FAERS Safety Report 25746116 (Version 1)
Quarter: 2025Q3

REPORT INFORMATION
  Report Type: Spontaneous
  Country: US (occurrence: US)
  Receive Date: 20250901
  Receipt Date: 20250901
  Transmission Date: 20251021
  Serious: No
  Sender: CSL Plasma
  Company Number: US-CSLP-52901780724-V14486161-2

PATIENT
  Age: 29 Year
  Sex: Female

DRUGS (3)
  1. ANTICOAGULANT SODIUM CITRATE [Suspect]
     Active Substance: SODIUM CITRATE
     Indication: Anticoagulant therapy
     Route: 050
     Dates: start: 20250809, end: 20250809
  2. HYDROXYZINE [Concomitant]
     Active Substance: HYDROXYZINE HYDROCHLORIDE
     Indication: Anxiety
  3. SERTRALINE [Concomitant]
     Active Substance: SERTRALINE HYDROCHLORIDE
     Indication: Depression

REACTIONS (16)
  - Hyperhidrosis [Recovering/Resolving]
  - Nausea [Recovered/Resolved]
  - Chills [Recovering/Resolving]
  - Tetany [Recovering/Resolving]
  - Anxiety [Recovering/Resolving]
  - Muscle spasms [Recovering/Resolving]
  - Tremor [Recovering/Resolving]
  - Tachypnoea [Recovering/Resolving]
  - Dizziness [Recovering/Resolving]
  - Movement disorder [Recovering/Resolving]
  - Pain [Recovering/Resolving]
  - Cold sweat [Recovering/Resolving]
  - Muscle twitching [Recovering/Resolving]
  - Hyperventilation [Recovering/Resolving]
  - Dyskinesia [Recovering/Resolving]
  - Musculoskeletal stiffness [Recovering/Resolving]

NARRATIVE: CASE EVENT DATE: 20250809
